FAERS Safety Report 4415395-2 (Version None)
Quarter: 2004Q3

REPORT INFORMATION
  Report Type: 
  Country: None (occurrence: None)
  Receive Date: 20040804
  Receipt Date: 20040726
  Transmission Date: 20050211
  Serious: Yes (Hospitalization)
  Sender: FDA-Public Use
  Company Number: PHBS2004AU10162

PATIENT
  Age: 80 Year
  Sex: Female
  Weight: 66 kg

DRUGS (13)
  1. CARBAMAZEPINE [Suspect]
     Dosage: 200 MG, BID
     Route: 065
  2. PARACETAMOL [Suspect]
     Dosage: 1 OR 2 TABLETS WEEKLY
     Route: 048
  3. PARACETAMOL [Suspect]
     Dosage: 1 G, QID
     Route: 048
  4. PROCHLORPERAZINE [Concomitant]
     Dosage: 5 MG, QID
     Route: 065
  5. METFORMIN HCL [Concomitant]
     Dosage: 500 MG, TID
     Route: 065
  6. ATORVASTATIN CALCIUM [Concomitant]
     Dosage: 20 MG/NOCTE
     Route: 065
  7. NITROGLYCERIN [Concomitant]
     Dosage: 50 MG
     Route: 062
  8. ASPIRIN W/DIPYRIDAMOLE [Concomitant]
     Dosage: 200/25 MG/BID
     Route: 065
  9. ATENOLOL [Concomitant]
     Dosage: 50 MG/DAY
     Route: 065
  10. OXAZEPAM [Concomitant]
     Dosage: 30 MG/NOCTE
     Route: 065
  11. FELODIPINE [Concomitant]
     Dosage: 5 MG/DAY
     Route: 065
  12. RAMIPRIL [Concomitant]
     Dosage: 5 MG/DAY
     Route: 065
  13. VENLAFAXINE HCL [Concomitant]
     Dosage: 75 MG/DAY
     Route: 065

REACTIONS (15)
  - ALANINE AMINOTRANSFERASE INCREASED [None]
  - ANTINUCLEAR ANTIBODY POSITIVE [None]
  - ASPARTATE AMINOTRANSFERASE INCREASED [None]
  - BLOOD ALKALINE PHOSPHATASE INCREASED [None]
  - BLOOD BILIRUBIN INCREASED [None]
  - CONFUSIONAL STATE [None]
  - DEMENTIA [None]
  - DRUG INTERACTION [None]
  - FALL [None]
  - GAMMA-GLUTAMYLTRANSFERASE INCREASED [None]
  - HEPATIC FAILURE [None]
  - HEPATOTOXICITY [None]
  - INTERNATIONAL NORMALISED RATIO INCREASED [None]
  - LETHARGY [None]
  - MUSCULOSKELETAL PAIN [None]
